FAERS Safety Report 17111509 (Version 1)
Quarter: 2019Q4

REPORT INFORMATION
  Report Type: Spontaneous
  Country: JP (occurrence: JP)
  Receive Date: 20191204
  Receipt Date: 20191204
  Transmission Date: 20200122
  Serious: Yes (Hospitalization)
  Sender: FDA-Public Use
  Company Number: NVSC2019JP056548

PATIENT
  Age: 66 Year
  Sex: Male

DRUGS (2)
  1. ALFACALCIDOL [Suspect]
     Active Substance: ALFACALCIDOL
     Indication: PRODUCT USED FOR UNKNOWN INDICATION
     Dosage: 0.25 UG, QD
     Route: 065
  2. CALCIUM CARBONATE. [Suspect]
     Active Substance: CALCIUM CARBONATE
     Indication: PRODUCT USED FOR UNKNOWN INDICATION
     Dosage: 3 G, QD
     Route: 065

REACTIONS (6)
  - Calcification metastatic [Unknown]
  - Mass [Unknown]
  - Pulmonary calcification [Unknown]
  - Arthralgia [Unknown]
  - Lung opacity [Unknown]
  - Muscle contracture [Unknown]
